FAERS Safety Report 17859874 (Version 1)
Quarter: 2020Q2

REPORT INFORMATION
  Report Type: Spontaneous
  Country: ES (occurrence: ES)
  Receive Date: 20200604
  Receipt Date: 20200604
  Transmission Date: 20200714
  Serious: Yes (Other)
  Sender: FDA-Public Use
  Company Number: ES-ACCORD-184119

PATIENT
  Age: 38 Year
  Sex: Female
  Weight: 55.8 kg

DRUGS (1)
  1. DOCETAXEL ACCORD [Suspect]
     Active Substance: DOCETAXEL
     Indication: PRODUCT USED FOR UNKNOWN INDICATION
     Dosage: LAST DOSE ADMINISTERED ON 15-MAY-2020, STRENGTH: 80 MG / 4 ML, 1 VIAL OF 4 ML, 120 MG
     Route: 041
     Dates: start: 20200515

REACTIONS (1)
  - Infusion related reaction [Recovered/Resolved]

NARRATIVE: CASE EVENT DATE: 20200515
